FAERS Safety Report 5026486-X (Version None)
Quarter: 2006Q2

REPORT INFORMATION
  Report Type: 
  Country: None (occurrence: None)
  Receive Date: 20060613
  Receipt Date: 20060613
  Transmission Date: 20061013
  Serious: Yes (Other)
  Sender: FDA-Public Use
  Company Number: None

PATIENT
  Sex: Female
  Weight: 75 kg

DRUGS (7)
  1. DEFEROXAMINE MESYLATE [Suspect]
     Indication: BLOOD IRON INCREASED
     Dosage: 2 GM  SIX DAYS WEEKLY
  2. DEFEROXAMINE MESYLATE [Suspect]
     Indication: SIDEROBLASTIC ANAEMIA
     Dosage: 2 GM  SIX DAYS WEEKLY
  3. THYROID TAB [Concomitant]
  4. AMBIEN [Concomitant]
  5. HYDROCORTISONE CREAM [Concomitant]
  6. RELAFEN [Concomitant]
  7. DIDRONAL [Concomitant]

REACTIONS (3)
  - ERYTHEMA [None]
  - MASS [None]
  - PHARMACEUTICAL PRODUCT COMPLAINT [None]
